FAERS Safety Report 9643423 (Version 1)
Quarter: 2013Q4

REPORT INFORMATION
  Report Type: Spontaneous
  Country: US (occurrence: US)
  Receive Date: 20131024
  Receipt Date: 20131024
  Transmission Date: 20140711
  Serious: Yes (Hospitalization)
  Sender: FDA-Public Use
  Company Number: US-JNJFOC-20131010949

PATIENT
  Sex: 0

DRUGS (1)
  1. DURAGESIC [Suspect]
     Indication: PRODUCT USED FOR UNKNOWN INDICATION
     Route: 062
     Dates: end: 20131013

REACTIONS (3)
  - Hospitalisation [Not Recovered/Not Resolved]
  - Wrong technique in drug usage process [Unknown]
  - Therapy cessation [Unknown]
